FAERS Safety Report 4668044-2 (Version None)
Quarter: 2005Q2

REPORT INFORMATION
  Report Type: 
  Country: None (occurrence: None)
  Receive Date: 20050520
  Receipt Date: 20050512
  Transmission Date: 20051028
  Serious: Yes (Hospitalization)
  Sender: FDA-Public Use
  Company Number: US-MERCK-0505USA01684

PATIENT
  Age: 50 Year
  Sex: Female

DRUGS (2)
  1. VIOXX [Suspect]
     Route: 048
  2. PREMPRO (PREMARIN;CYCRIN 14/14) [Concomitant]
     Route: 065

REACTIONS (1)
  - MYOCARDIAL INFARCTION [None]
